FAERS Safety Report 14100094 (Version 1)
Quarter: 2017Q4

REPORT INFORMATION
  Report Type: Spontaneous
  Country: US (occurrence: US)
  Receive Date: 20171017
  Receipt Date: 20171017
  Transmission Date: 20180321
  Serious: Yes (Other)
  Sender: FDA-Public Use
  Company Number: US-NOVOPROD-567402

PATIENT
  Sex: Male

DRUGS (1)
  1. NOVOLOG [Suspect]
     Active Substance: INSULIN ASPART
     Indication: PRODUCT USED FOR UNKNOWN INDICATION
     Dosage: UNK
     Route: 058

REACTIONS (4)
  - Cholecystitis [Unknown]
  - Hepatic steatosis [Unknown]
  - Gallbladder polyp [Unknown]
  - Hypertension [Unknown]

NARRATIVE: CASE EVENT DATE: 20171008
